FAERS Safety Report 15465100 (Version 1)
Quarter: 2018Q4

REPORT INFORMATION
  Report Type: Spontaneous
  Country: CA (occurrence: CA)
  Receive Date: 20181004
  Receipt Date: 20181004
  Transmission Date: 20190204
  Serious: Yes (Life-Threatening, Other)
  Sender: FDA-Public Use
  Company Number: CA-JAZZ-2017-CA-017063

PATIENT
  Age: 3 Year
  Sex: Male
  Weight: 20 kg

DRUGS (1)
  1. ERWINASE [Suspect]
     Active Substance: ASPARAGINASE ERWINIA CHRYSANTHEMI
     Indication: LEUKAEMIA
     Dosage: 1700 U, QOW
     Route: 042

REACTIONS (1)
  - Anaphylactic reaction [Recovered/Resolved]
